FAERS Safety Report 25562650 (Version 1)
Quarter: 2025Q3

REPORT INFORMATION
  Report Type: Spontaneous
  Country: TH (occurrence: TH)
  Receive Date: 20250716
  Receipt Date: 20250716
  Transmission Date: 20251021
  Serious: Yes (Other)
  Sender: AMGEN
  Company Number: TH-AMGEN-THASP2025138410

PATIENT
  Age: 46 Year
  Sex: Male

DRUGS (1)
  1. BEVACIZUMAB [Suspect]
     Active Substance: BEVACIZUMAB
     Indication: Retinal neovascularisation

REACTIONS (4)
  - Central serous chorioretinopathy [Recovered/Resolved]
  - Drug effective for unapproved indication [Unknown]
  - Off label use [Unknown]
  - Drug ineffective for unapproved indication [Unknown]
